FAERS Safety Report 5297847-9 (Version None)
Quarter: 2007Q2

REPORT INFORMATION
  Report Type: 
  Country: None (occurrence: None)
  Receive Date: 20070413
  Receipt Date: 20070413
  Transmission Date: 20071010
  Serious: Yes (Hospitalization)
  Sender: FDA-Public Use
  Company Number: None

PATIENT
  Sex: Female
  Weight: 67 kg

DRUGS (4)
  1. DOXORUBICIN HYDROCHLORIDE [Suspect]
     Dosage: 54 MG
  2. ETOPOSIDE [Suspect]
     Dosage: 264 MG
  3. RITUXIMAB (MOAB C2B8 ANTI CD20, CHIMERIC) [Suspect]
  4. VINCRISTINE SULFATE [Suspect]
     Dosage: 2.13 MG

REACTIONS (2)
  - INTESTINAL PERFORATION [None]
  - RESPIRATORY DISTRESS [None]
